FAERS Safety Report 9072366 (Version 1)
Quarter: 2013Q1

REPORT INFORMATION
  Report Type: Spontaneous
  Country: None (occurrence: US)
  Receive Date: 20130206
  Receipt Date: 20130206
  Transmission Date: 20140127
  Serious: No
  Sender: FDA-Public Use
  Company Number: US-ALLERGAN-200503560

PATIENT
  Age: 64 Year
  Sex: Male

DRUGS (3)
  1. RESTASIS? [Suspect]
     Indication: DRY EYE
     Dosage: 2GTT, BID
     Route: 047
     Dates: start: 20050423
  2. ALOCRIL [Concomitant]
     Indication: HYPERSENSITIVITY
     Dosage: 2GTT, BID
     Dates: start: 20050425
  3. FRESH KOTE [Concomitant]
     Indication: PRODUCT USED FOR UNKNOWN INDICATION
     Route: 047

REACTIONS (4)
  - Eyelid disorder [Not Recovered/Not Resolved]
  - Eye discharge [Not Recovered/Not Resolved]
  - Drug ineffective [Unknown]
  - Eye pain [Unknown]
